FAERS Safety Report 9254816 (Version 3)
Quarter: 2013Q3

REPORT INFORMATION
  Report Type: Spontaneous
  Country: US (occurrence: US)
  Receive Date: 20130425
  Receipt Date: 20130927
  Transmission Date: 20140515
  Serious: Yes (Hospitalization, Other)
  Sender: FDA-Public Use
  Company Number: US-ASTRAZENECA-2013SE27637

PATIENT
  Age: 20870 Day
  Sex: Female
  Weight: 113.4 kg

DRUGS (7)
  1. NEXIUM [Suspect]
     Indication: GASTROOESOPHAGEAL REFLUX DISEASE
     Route: 048
     Dates: start: 20080103
  2. SINGULAIR [Concomitant]
  3. ATENOLOL [Concomitant]
     Dates: start: 20080110
  4. TAGAMET [Concomitant]
  5. TAGAMET [Concomitant]
  6. TUMS [Concomitant]
     Dosage: 2 TABLET EVERY FOUR HOURS
  7. TUMS [Concomitant]
     Dosage: TAKING AS NEEDED

REACTIONS (13)
  - Femur fracture [Unknown]
  - Sepsis [Unknown]
  - Fall [Unknown]
  - Osteoporosis [Unknown]
  - Bone density decreased [Unknown]
  - Bone disorder [Unknown]
  - Ankle fracture [Unknown]
  - Staphylococcal infection [Unknown]
  - Chest pain [Unknown]
  - Chronic obstructive pulmonary disease [Unknown]
  - Vitamin D deficiency [Unknown]
  - Osteoarthritis [Unknown]
  - Arthropathy [Unknown]
